FAERS Safety Report 16660990 (Version 1)
Quarter: 2019Q3

REPORT INFORMATION
  Report Type: Spontaneous
  Country: US (occurrence: US)
  Receive Date: 20190619
  Receipt Date: 20190619
  Transmission Date: 20191004
  Serious: Yes (Other)
  Sender: FDA-Public Use
  Company Number: None

PATIENT
  Age: 26 Year
  Sex: Female
  Weight: 60.33 kg

DRUGS (2)
  1. BUPROPION XL 300MG CIPLA [Suspect]
     Active Substance: BUPROPION
     Indication: ANXIETY
     Dosage: ?          OTHER FREQUENCY:QAM;?
     Route: 048
     Dates: start: 20190316, end: 20190527
  2. BUPROPION XL 300MG CIPLA [Suspect]
     Active Substance: BUPROPION
     Indication: DEPRESSION
     Dosage: ?          OTHER FREQUENCY:QAM;?
     Route: 048
     Dates: start: 20190316, end: 20190527

REACTIONS (5)
  - Crying [None]
  - Condition aggravated [None]
  - Somnolence [None]
  - Irritability [None]
  - Emotional disorder [None]
